FAERS Safety Report 17547091 (Version 1)
Quarter: 2020Q1

REPORT INFORMATION
  Report Type: Report from Study
  Country: EG (occurrence: EG)
  Receive Date: 20200316
  Receipt Date: 20200316
  Transmission Date: 20200409
  Serious: Yes (Other)
  Sender: FDA-Public Use
  Company Number: PHHY2016EG038342

PATIENT
  Age: 54 Year
  Sex: Female
  Weight: 105 kg

DRUGS (4)
  1. METFORMIN,VILDAGLIPTIN [Suspect]
     Active Substance: METFORMIN\VILDAGLIPTIN
     Indication: TYPE 2 DIABETES MELLITUS
     Dosage: 1 DF (1000/50), UNK
     Route: 048
     Dates: start: 20151111
  2. INSULIN MIXTARD [Concomitant]
     Active Substance: INSULIN HUMAN
     Indication: PRODUCT USED FOR UNKNOWN INDICATION
     Dosage: 40 IU, QD
     Route: 065
  3. CAPTOPRIL. [Concomitant]
     Active Substance: CAPTOPRIL
     Indication: HYPERTENSION
     Dosage: 50 MG, UNK
     Route: 065
     Dates: start: 2013, end: 20160403
  4. INSULIN BASAL [Concomitant]
     Active Substance: INSULIN NOS
     Indication: PRODUCT USED FOR UNKNOWN INDICATION
     Dosage: UNK
     Route: 065

REACTIONS (4)
  - Stress [Unknown]
  - Polyuria [Unknown]
  - Hyperglycaemia [Recovered/Resolved]
  - Hyperphagia [Unknown]

NARRATIVE: CASE EVENT DATE: 20160315
